FAERS Safety Report 6548161-2 (Version None)
Quarter: 2010Q1

REPORT INFORMATION
  Report Type: 
  Country: None (occurrence: None)
  Receive Date: 20100124
  Receipt Date: 20090121
  Transmission Date: 20100710
  Serious: No
  Sender: FDA-Public Use
  Company Number: US-ALLERGAN-0900756US

PATIENT
  Age: 82 Year
  Sex: Female

DRUGS (3)
  1. RESTASIS [Suspect]
     Indication: DRY EYE
     Dosage: 1 GTT, BID
     Route: 047
  2. REFRESH PLUS [Suspect]
     Indication: DRY EYE
     Route: 047
  3. REFRESH PLUS [Suspect]

REACTIONS (3)
  - ASTHENOPIA [None]
  - EYE PAIN [None]
  - FACIAL PAIN [None]
